FAERS Safety Report 6899243-7 (Version None)
Quarter: 2010Q3

REPORT INFORMATION
  Report Type: 
  Country: None (occurrence: None)
  Receive Date: 20100802
  Receipt Date: 20080322
  Transmission Date: 20110219
  Serious: Yes (Hospitalization, Other)
  Sender: FDA-Public Use
  Company Number: US-PFIZER INC-2007099934

PATIENT
  Sex: Male
  Weight: 102.1 kg

DRUGS (1)
  1. LYRICA [Suspect]
     Indication: NEUROPATHY PERIPHERAL
     Route: 048
     Dates: start: 20071106, end: 20071114

REACTIONS (3)
  - HYPOTENSION [None]
  - MUSCLE TWITCHING [None]
  - SYNCOPE [None]
